FAERS Safety Report 6465579-7 (Version None)
Quarter: 2009Q4

REPORT INFORMATION
  Report Type: 
  Country: None (occurrence: None)
  Receive Date: 20091201
  Receipt Date: 20081202
  Transmission Date: 20100525
  Serious: No
  Sender: FDA-Public Use
  Company Number: US-AMGEN-KDL316616

PATIENT
  Sex: Female

DRUGS (5)
  1. ENBREL [Suspect]
     Indication: RHEUMATOID ARTHRITIS
     Route: 058
     Dates: start: 20080903
  2. ARAVA [Concomitant]
     Route: 048
  3. METHOTREXATE [Concomitant]
  4. DIFLUCAN [Concomitant]
  5. ASCORBIC ACID [Concomitant]

REACTIONS (14)
  - ANXIETY [None]
  - BLOOD TEST ABNORMAL [None]
  - CONTUSION [None]
  - DRUG INEFFECTIVE [None]
  - DYSPNOEA [None]
  - HYPERHIDROSIS [None]
  - HYPOAESTHESIA [None]
  - INFECTION [None]
  - INJECTION SITE ERYTHEMA [None]
  - INJECTION SITE HAEMATOMA [None]
  - INJECTION SITE PRURITUS [None]
  - LIMB INJURY [None]
  - MENSTRUATION IRREGULAR [None]
  - NECK PAIN [None]
